FAERS Safety Report 9263785 (Version 4)
Quarter: 2013Q3

REPORT INFORMATION
  Report Type: Report from Study
  Country: US (occurrence: US)
  Receive Date: 20130430
  Receipt Date: 20130719
  Transmission Date: 20140515
  Serious: Yes (Hospitalization)
  Sender: FDA-Public Use
  Company Number: US-ROCHE-1184829

PATIENT
  Age: 46 Year
  Sex: Female
  Weight: 48 kg

DRUGS (6)
  1. TRASTUZUMAB EMTANSINE [Suspect]
     Indication: HER-2 POSITIVE BREAST CANCER
     Dosage: DATE OF  LAST DOSE: 4/JAN/2013. MOST RECENT DOSE PRIOR TO DEATH: 160 (UNITS NOT REPORTED) 15/MAR/201
     Route: 042
     Dates: start: 20121026
  2. PACLITAXEL [Suspect]
     Indication: HER-2 POSITIVE BREAST CANCER
     Dosage: DATE OF  LAST DOSE: 95 (UNITS NOT REPORTED) ON 18/JAN/2013
     Route: 042
     Dates: start: 20121026
  3. COMPAZINE [Concomitant]
     Indication: NAUSEA
     Route: 065
     Dates: start: 20121026
  4. OXYCODONE [Concomitant]
     Indication: PAIN
     Route: 065
     Dates: start: 20121123, end: 20130125
  5. ATIVAN [Concomitant]
     Indication: ANXIETY
     Route: 065
     Dates: start: 20121123
  6. PROBIOTIC (ENZYMES, INC) [Concomitant]
     Indication: MUSCLE SPASMS
     Route: 065
     Dates: start: 20130104, end: 20130125

REACTIONS (4)
  - Dyspnoea [Recovered/Resolved]
  - Nausea [Recovered/Resolved]
  - Dizziness [Recovered/Resolved]
  - Fatigue [Recovered/Resolved]
